FAERS Safety Report 9638889 (Version 1)
Quarter: 2013Q4

REPORT INFORMATION
  Report Type: Spontaneous
  Country: US (occurrence: US)
  Receive Date: 20131022
  Receipt Date: 20131022
  Transmission Date: 20140711
  Serious: No
  Sender: FDA-Public Use
  Company Number: US-EISAI INC-AP356-00170-SPO-US

PATIENT
  Age: 58 Year
  Sex: Female
  Weight: 100.9 kg

DRUGS (12)
  1. BELVIQ (LORCASERIN HYDROCHLORIDE) [Suspect]
     Indication: WEIGHT DECREASED
     Route: 048
     Dates: start: 20130806, end: 20130828
  2. DICLOFENAC POTASSIUM [Concomitant]
     Indication: SPINAL PAIN
     Route: 048
     Dates: start: 201302
  3. DICLOFENAC POTASSIUM [Concomitant]
     Indication: ARTHRALGIA
  4. PRAVASTATIN [Concomitant]
     Indication: BLOOD CHOLESTEROL INCREASED
     Route: 048
     Dates: start: 2012
  5. CLARITIN-D [Concomitant]
     Indication: SEASONAL ALLERGY
     Route: 048
  6. LEVOTHYROXINE [Concomitant]
     Indication: AUTOIMMUNE THYROIDITIS
     Route: 048
  7. VICODIN [Concomitant]
     Indication: SPINAL PAIN
     Route: 048
  8. VICODIN [Concomitant]
     Indication: ARTHRALGIA
  9. XANAX [Concomitant]
     Indication: INSOMNIA
     Route: 048
     Dates: start: 2012
  10. CALCIUM [Concomitant]
     Indication: MINERAL SUPPLEMENTATION
     Dosage: UNKNOWN
     Route: 048
     Dates: start: 2013
  11. VITAMIN D [Concomitant]
     Indication: VITAMIN SUPPLEMENTATION
     Dosage: UNKNOWN
  12. CENTRUM SILVER [Concomitant]
     Indication: VITAMIN SUPPLEMENTATION
     Dosage: UNKNOWN
     Route: 048

REACTIONS (3)
  - Depression [Recovering/Resolving]
  - Suicidal ideation [Recovered/Resolved]
  - Fatigue [Recovered/Resolved]
